FAERS Safety Report 8023355-8 (Version None)
Quarter: 2012Q1

REPORT INFORMATION
  Report Type: 
  Country: None (occurrence: None)
  Receive Date: 20120104
  Receipt Date: 20111223
  Transmission Date: 20120608
  Serious: Yes (Hospitalization, Other)
  Sender: FDA-Public Use
  Company Number: US-ELI_LILLY_AND_COMPANY-US201112007219

PATIENT
  Sex: Female

DRUGS (3)
  1. HUMULIN 70/30 [Concomitant]
     Dosage: 50 U, EACH EVENING
  2. BYETTA [Suspect]
     Dosage: UNK, UNKNOWN
     Route: 058
  3. HUMULIN 70/30 [Concomitant]
     Indication: DIABETES MELLITUS
     Dosage: 50 U, EACH MORNING

REACTIONS (5)
  - HOSPITALISATION [None]
  - INAPPROPRIATE SCHEDULE OF DRUG ADMINISTRATION [None]
  - BLOOD GLUCOSE DECREASED [None]
  - DEPRESSED LEVEL OF CONSCIOUSNESS [None]
  - SHOCK HYPOGLYCAEMIC [None]
